FAERS Safety Report 12402922 (Version 2)
Quarter: 2016Q2

REPORT INFORMATION
  Report Type: Spontaneous
  Country: PL (occurrence: PL)
  Receive Date: 20160525
  Receipt Date: 20160601
  Transmission Date: 20160815
  Serious: Yes (Hospitalization, Other)
  Sender: FDA-Public Use
  Company Number: PHHY2016PL069926

PATIENT
  Age: 32 Year
  Sex: Female

DRUGS (7)
  1. PHENYTOIN. [Suspect]
     Active Substance: PHENYTOIN
     Indication: EPILEPSY
     Dosage: 1200 MG, QD
     Route: 065
  2. THIOPENTAL [Suspect]
     Active Substance: THIOPENTAL
     Dosage: 10 MG/KG, QH
     Route: 041
  3. THIOPENTAL [Suspect]
     Active Substance: THIOPENTAL
     Indication: EPILEPSY
     Dosage: 2 MG/KG, QH
     Route: 041
  4. PHENYTOIN. [Suspect]
     Active Substance: PHENYTOIN
     Dosage: 800 MG, UNK
     Route: 065
  5. CLONAZEPAM. [Suspect]
     Active Substance: CLONAZEPAM
     Indication: EPILEPSY
     Route: 065
  6. LEVETIRACETAM. [Suspect]
     Active Substance: LEVETIRACETAM
     Indication: EPILEPSY
     Dosage: DOSE INCREASED BY 10%
     Route: 065
  7. VALPROATE SODIUM. [Suspect]
     Active Substance: VALPROATE SODIUM
     Indication: EPILEPSY
     Route: 065

REACTIONS (2)
  - Foetal death [Unknown]
  - Exposure during pregnancy [Unknown]
